FAERS Safety Report 7135872-3 (Version None)
Quarter: 2010Q4

REPORT INFORMATION
  Report Type: 
  Country: None (occurrence: None)
  Receive Date: 20101119
  Receipt Date: 20101103
  Transmission Date: 20110411
  Serious: Yes (Hospitalization, Other)
  Sender: FDA-Public Use
  Company Number: 021506

PATIENT
  Sex: Male
  Weight: 84.369 kg

DRUGS (8)
  1. CIMZIA [Suspect]
     Indication: RHEUMATOID ARTHRITIS
     Dosage: (200 MG 1X/2 WEEKS SUBCUTANEOUS) ; (SUBCUTANEOUS)
     Route: 058
     Dates: start: 20100921, end: 20100101
  2. CIMZIA [Suspect]
     Indication: RHEUMATOID ARTHRITIS
     Dosage: (200 MG 1X/2 WEEKS SUBCUTANEOUS) ; (SUBCUTANEOUS)
     Route: 058
     Dates: start: 20101014
  3. METHOTREXATE [Concomitant]
  4. PREDNISONE [Concomitant]
  5. VITAMIN B6 [Concomitant]
  6. DILANTIN [Concomitant]
  7. GRAVOL TAB [Concomitant]
  8. RANITIDINE [Concomitant]

REACTIONS (2)
  - INTENTIONAL DRUG MISUSE [None]
  - MEDICATION ERROR [None]
